FAERS Safety Report 11803538 (Version 1)
Quarter: 2015Q4

REPORT INFORMATION
  Report Type: Spontaneous
  Country: US (occurrence: None)
  Receive Date: 20151203
  Receipt Date: 20151203
  Transmission Date: 20160305
  Serious: Yes (Other)
  Sender: FDA-Public Use
  Company Number: None

PATIENT
  Age: 71 Year
  Sex: Female

DRUGS (2)
  1. AMIKACIN 500MG PER 2 ML TEVA [Suspect]
     Active Substance: AMIKACIN
     Indication: BRONCHITIS
     Route: 055
     Dates: start: 20151103
  2. TOBRAMYCIN. [Concomitant]
     Active Substance: TOBRAMYCIN

REACTIONS (1)
  - Vomiting [None]

NARRATIVE: CASE EVENT DATE: 201511
